FAERS Safety Report 5470356-X (Version None)
Quarter: 2007Q3

REPORT INFORMATION
  Report Type: 
  Country: None (occurrence: None)
  Receive Date: 20070925
  Receipt Date: 20070910
  Transmission Date: 20080115
  Serious: Yes (Death, Hospitalization)
  Sender: FDA-Public Use
  Company Number: 2007BI018835

PATIENT
  Age: 27 Year
  Sex: Female
  Weight: 59 kg

DRUGS (3)
  1. AVONEX [Suspect]
     Indication: MULTIPLE SCLEROSIS
     Dosage: 1; QW; IM
     Route: 030
     Dates: start: 20050901
  2. CYCLOPHOSPHAMIDE [Concomitant]
  3. METHYLXANTHINE [Concomitant]

REACTIONS (6)
  - CARDIAC ARREST [None]
  - DYSPNOEA [None]
  - IMMUNODEFICIENCY [None]
  - PROGRESSIVE RELAPSING MULTIPLE SCLEROSIS [None]
  - URINARY TRACT INFECTION [None]
  - VAGINAL DISCHARGE [None]
